FAERS Safety Report 25532556 (Version 2)
Quarter: 2025Q3

REPORT INFORMATION
  Report Type: Report from Study
  Country: US (occurrence: US)
  Receive Date: 20250709
  Receipt Date: 20250805
  Transmission Date: 20251020
  Serious: Yes (Other)
  Sender: ACADIA PHARMACEUTICALS
  Company Number: US-ACADIA PHARMACEUTICALS INC.-ACA-2025-PIM-007917

PATIENT
  Sex: Male

DRUGS (2)
  1. NUPLAZID [Suspect]
     Active Substance: PIMAVANSERIN TARTRATE
     Indication: Restlessness
     Dosage: 34 MILLIGRAM, QD
     Route: 048
     Dates: start: 202412
  2. NUPLAZID [Suspect]
     Active Substance: PIMAVANSERIN TARTRATE
     Indication: Agitation

REACTIONS (7)
  - Hallucination [Unknown]
  - Hallucination, visual [Not Recovered/Not Resolved]
  - Anger [Unknown]
  - General symptom [Unknown]
  - Abnormal behaviour [Unknown]
  - Agitation [Unknown]
  - Product use in unapproved indication [Unknown]
